FAERS Safety Report 5182660-3 (Version None)
Quarter: 2006Q4

REPORT INFORMATION
  Report Type: 
  Country: None (occurrence: None)
  Receive Date: 20061220
  Receipt Date: 20061130
  Transmission Date: 20070319
  Serious: Yes (Hospitalization)
  Sender: FDA-Public Use
  Company Number: ES-ELI_LILLY_AND_COMPANY-ES200612000299

PATIENT
  Age: 75 Year
  Sex: Female

DRUGS (7)
  1. FORTEO [Suspect]
     Indication: OSTEOPOROSIS
     Dosage: 20 UG, UNK
     Route: 058
  2. OMEPRAZOLE [Concomitant]
  3. CALCIUM [Concomitant]
  4. ZAMENE [Concomitant]
  5. TARDYFERON /GFR/ [Concomitant]
  6. SEROXAT [Concomitant]
  7. NOLOTIL [Concomitant]

REACTIONS (2)
  - ANAEMIA [None]
  - PAIN IN EXTREMITY [None]
